FAERS Safety Report 9637365 (Version 2)
Quarter: 2013Q4

REPORT INFORMATION
  Report Type: Spontaneous
  Country: BR (occurrence: BR)
  Receive Date: 20131022
  Receipt Date: 20131203
  Transmission Date: 20140711
  Serious: Yes (Hospitalization)
  Sender: FDA-Public Use
  Company Number: PHHY2013BR117883

PATIENT
  Age: 87 Year
  Sex: Female
  Weight: 85 kg

DRUGS (2)
  1. EXELON PATCH [Suspect]
     Indication: DEMENTIA ALZHEIMER^S TYPE
     Dosage: 9MG/5CM2, 1 DAILY
     Route: 062
  2. EXELON PATCH [Suspect]
     Dosage: 18MG/10CM2, 1 DAILY
     Route: 062

REACTIONS (6)
  - Hypoglycaemia [Recovered/Resolved]
  - Syncope [Unknown]
  - Malaise [Unknown]
  - Memory impairment [Unknown]
  - Fatigue [Unknown]
  - Drug ineffective [Unknown]
